FAERS Safety Report 7932769-3 (Version None)
Quarter: 2011Q4

REPORT INFORMATION
  Report Type: 
  Country: None (occurrence: None)
  Receive Date: 20111122
  Receipt Date: 20111115
  Transmission Date: 20120403
  Serious: Yes (Hospitalization)
  Sender: FDA-Public Use
  Company Number: US-JNJFOC-20111107974

PATIENT
  Sex: Female
  Weight: 38.1 kg

DRUGS (3)
  1. REMICADE [Suspect]
     Indication: INFLAMMATORY BOWEL DISEASE
     Route: 042
     Dates: start: 20091001, end: 20110126
  2. METHOTREXATE [Concomitant]
  3. ERGOCALCIFEROL [Concomitant]

REACTIONS (1)
  - CROHN'S DISEASE [None]
